FAERS Safety Report 4893808-X (Version None)
Quarter: 2005Q4

REPORT INFORMATION
  Report Type: 
  Country: None (occurrence: None)
  Receive Date: 20051223
  Receipt Date: 20051120
  Transmission Date: 20060501
  Serious: No
  Sender: FDA-Public Use
  Company Number: 2005PV004593

PATIENT
  Age: 62 Year
  Sex: Female
  Weight: 86.1834 kg

DRUGS (11)
  1. SYMLIN [Suspect]
     Indication: DIABETES MELLITUS NON-INSULIN-DEPENDENT
     Dosage: 15 MCG;BID;SC
     Route: 058
     Dates: start: 20051118
  2. GLUCOPHAGE [Concomitant]
  3. GLIPIZIDE [Concomitant]
  4. LANTUS [Concomitant]
  5. HUMALOG [Concomitant]
  6. PRAVACHOL [Concomitant]
  7. PREVACID [Concomitant]
  8. ACCUPRIL [Concomitant]
  9. ALDACTAZIDE [Concomitant]
  10. COREG [Concomitant]
  11. ECOTRIN [Concomitant]

REACTIONS (3)
  - BLOOD GLUCOSE INCREASED [None]
  - DRUG ADMINISTRATION ERROR [None]
  - MEDICATION ERROR [None]
